FAERS Safety Report 8961105 (Version 3)
Quarter: 2013Q4

REPORT INFORMATION
  Report Type: Spontaneous
  Country: US (occurrence: US)
  Receive Date: 20121212
  Receipt Date: 20131024
  Transmission Date: 20140711
  Serious: Yes (Disabling)
  Sender: FDA-Public Use
  Company Number: US-PFIZER INC-2012312889

PATIENT
  Age: 59 Year
  Sex: Female
  Weight: 92.52 kg

DRUGS (9)
  1. LYRICA [Suspect]
     Indication: FIBROMYALGIA
     Dosage: 225 MG, 2X/DAY
     Route: 048
  2. CYMBALTA [Concomitant]
     Dosage: UNK
  3. LOSARTAN [Concomitant]
     Indication: HYPERTENSION
     Dosage: UNK
  4. HYZAAR [Concomitant]
     Dosage: UNK
  5. PAXIL [Concomitant]
     Dosage: UNK
  6. ASPIRIN [Concomitant]
     Dosage: UNK
  7. CRESTOR [Concomitant]
     Dosage: UNK
  8. ULTRAM [Concomitant]
     Dosage: UNK
  9. COREG [Concomitant]
     Dosage: UNK

REACTIONS (3)
  - Fibromyalgia [Not Recovered/Not Resolved]
  - Glaucoma [Not Recovered/Not Resolved]
  - Hypertension [Not Recovered/Not Resolved]
